FAERS Safety Report 14764665 (Version 1)
Quarter: 2018Q2

REPORT INFORMATION
  Report Type: Report from Study
  Country: CO (occurrence: CO)
  Receive Date: 20180416
  Receipt Date: 20180416
  Transmission Date: 20180711
  Serious: Yes (Hospitalization)
  Sender: FDA-Public Use
  Company Number: CO-JNJFOC-20180227323

PATIENT
  Age: 30 Year
  Sex: Male
  Weight: 89 kg

DRUGS (1)
  1. INVEGA SUSTENNA [Suspect]
     Active Substance: PALIPERIDONE PALMITATE
     Indication: SCHIZOPHRENIA
     Route: 030
     Dates: start: 20150703

REACTIONS (6)
  - Blood glucose abnormal [Recovered/Resolved]
  - Hallucination [Recovered/Resolved]
  - Thyroid disorder [Recovered/Resolved]
  - Fear [Recovered/Resolved]
  - Blood cholesterol abnormal [Recovered/Resolved]
  - Anxiety [Recovered/Resolved]

NARRATIVE: CASE EVENT DATE: 20180110
